FAERS Safety Report 9006867 (Version 7)
Quarter: 2014Q1

REPORT INFORMATION
  Report Type: Spontaneous
  Country: US (occurrence: US)
  Receive Date: 20130110
  Receipt Date: 20140311
  Transmission Date: 20141002
  Serious: Yes (Hospitalization, Other)
  Sender: FDA-Public Use
  Company Number: US-MERCK-1301USA002955

PATIENT
  Sex: Female
  Weight: 76.19 kg

DRUGS (8)
  1. FOSAMAX [Suspect]
     Indication: OSTEOPENIA
     Dosage: 10 MG, QD
     Route: 048
     Dates: start: 19980113, end: 200110
  2. FOSAMAX [Suspect]
     Indication: OSTEOPOROSIS
     Dosage: 70 MG, QW
     Route: 048
     Dates: start: 20010222, end: 200801
  3. VITAMINS (UNSPECIFIED) [Concomitant]
     Dosage: UNK
     Dates: start: 1987
  4. CHOLECALCIFEROL [Concomitant]
     Dosage: UNK
     Dates: start: 1987
  5. CALCIUM CARBONATE [Concomitant]
     Dosage: UNK
     Dates: start: 1987
  6. CALCIUM (UNSPECIFIED) (+) VITAMIN D (UNSPECIFIED) [Concomitant]
     Dosage: UNK
     Dates: start: 1995
  7. AVARA [Concomitant]
     Indication: PSORIATIC ARTHROPATHY
     Dosage: UNK
     Dates: start: 2003
  8. CORTICOSTEROIDS (UNSPECIFIED) [Concomitant]
     Dosage: UNK
     Dates: start: 1980, end: 2007

REACTIONS (29)
  - Femur fracture [Unknown]
  - Intramedullary rod insertion [Unknown]
  - Fracture nonunion [Recovered/Resolved]
  - Open reduction of fracture [Recovered/Resolved]
  - Removal of internal fixation [Recovered/Resolved]
  - Fracture delayed union [Unknown]
  - Foot fracture [Unknown]
  - Foot fracture [Not Recovered/Not Resolved]
  - Fracture nonunion [Unknown]
  - Adverse event [Unknown]
  - Hypertension [Recovered/Resolved]
  - Infection [Unknown]
  - Psoriasis [Unknown]
  - Menstruation irregular [Unknown]
  - Uterine leiomyoma [Unknown]
  - Cervicitis [Unknown]
  - Uterine malposition [Unknown]
  - Urinary tract infection [Unknown]
  - Arthritis [Unknown]
  - Vulvovaginal pruritus [Unknown]
  - Vulvovaginal burning sensation [Unknown]
  - Osteoarthritis [Unknown]
  - Blood cholesterol increased [Unknown]
  - Osteoarthritis [Unknown]
  - Haemarthrosis [Unknown]
  - Myalgia [Unknown]
  - Musculoskeletal discomfort [Unknown]
  - Thrombosis [Unknown]
  - Bone disorder [Unknown]
